FAERS Safety Report 10263869 (Version 1)
Quarter: 2014Q2

REPORT INFORMATION
  Report Type: Spontaneous
  Country: IQ (occurrence: IQ)
  Receive Date: 20140627
  Receipt Date: 20140627
  Transmission Date: 20141212
  Serious: Yes (Other)
  Sender: FDA-Public Use
  Company Number: IQ-UCBSA-2014002990

PATIENT
  Age: 46 Year
  Sex: Male

DRUGS (1)
  1. KEPPRA [Suspect]
     Indication: EPILEPSY
     Dosage: 1 G DAILY
     Dates: start: 2014, end: 2014

REACTIONS (1)
  - Generalised oedema [Recovered/Resolved]
